FAERS Safety Report 21051975 (Version 3)
Quarter: 2022Q3

REPORT INFORMATION
  Report Type: Spontaneous
  Country: FR (occurrence: FR)
  Receive Date: 20220707
  Receipt Date: 20220727
  Transmission Date: 20221027
  Serious: Yes (Hospitalization, Other)
  Sender: FDA-Public Use
  Company Number: FR-NOVARTISPH-NVSC2022FR151492

PATIENT
  Age: 36 Year
  Sex: Male

DRUGS (1)
  1. EXJADE [Suspect]
     Active Substance: DEFERASIROX
     Indication: Sickle cell disease
     Dosage: UNK
     Route: 065
     Dates: start: 2017, end: 202205

REACTIONS (11)
  - Pancreatitis [Not Recovered/Not Resolved]
  - Acute kidney injury [Recovered/Resolved]
  - Acute hepatic failure [Recovered/Resolved]
  - Multiple organ dysfunction syndrome [Recovered/Resolved]
  - Respiratory failure [Unknown]
  - General physical health deterioration [Unknown]
  - Pneumonia staphylococcal [Unknown]
  - Bacteraemia [Unknown]
  - Sepsis [Unknown]
  - Necrosis [Not Recovered/Not Resolved]
  - Gastroenteritis [Unknown]

NARRATIVE: CASE EVENT DATE: 20220501
